FAERS Safety Report 4455754-5 (Version None)
Quarter: 2004Q3

REPORT INFORMATION
  Report Type: 
  Country: None (occurrence: None)
  Receive Date: 20040920
  Receipt Date: 20040913
  Transmission Date: 20050211
  Serious: Yes (Death)
  Sender: FDA-Public Use
  Company Number: 2004233169US

PATIENT
  Age: 45 Year
  Sex: Male

DRUGS (4)
  1. CLEOCIN HCL [Suspect]
     Indication: CHRONIC SINUSITIS
  2. TEQUIN [Suspect]
     Indication: CHRONIC SINUSITIS
  3. AVELOX [Suspect]
     Indication: CHRONIC SINUSITIS
  4. AUGMENTIN '125' [Suspect]
     Indication: CHRONIC SINUSITIS

REACTIONS (4)
  - DIALYSIS [None]
  - HEPATIC FAILURE [None]
  - MULTI-ORGAN FAILURE [None]
  - RENAL FAILURE [None]
